FAERS Safety Report 24723146 (Version 1)
Quarter: 2024Q4

REPORT INFORMATION
  Report Type: Spontaneous
  Country: CN (occurrence: CN)
  Receive Date: 20241211
  Receipt Date: 20241211
  Transmission Date: 20250115
  Serious: Yes (Other)
  Sender: BAYER HEALTHCARE PHARMACEUTICALS INC.
  Company Number: CN-BAYER-2024A174889

PATIENT
  Age: 41 Year
  Sex: Female
  Weight: 47.5 kg

DRUGS (1)
  1. KOVALTRY [Suspect]
     Active Substance: ANTIHEMOPHILIC FACTOR, HUMAN RECOMBINANT
     Dosage: UNK
     Dates: start: 20240907, end: 20240914

REACTIONS (1)
  - Autoimmune nephritis [Recovering/Resolving]

NARRATIVE: CASE EVENT DATE: 20241030
